FAERS Safety Report 5442605-5 (Version None)
Quarter: 2007Q3

REPORT INFORMATION
  Report Type: 
  Country: None (occurrence: None)
  Receive Date: 20070904
  Receipt Date: 20070828
  Transmission Date: 20080115
  Serious: Yes (Death)
  Sender: FDA-Public Use
  Company Number: IT-ASTRAZENECA-2007AC01629

PATIENT

DRUGS (1)
  1. LIDOCAINE [Suspect]
     Dosage: DOSE REPORTED AS 'UP TO 25 GRAMS'
     Route: 048

REACTIONS (1)
  - OVERDOSE [None]
